FAERS Safety Report 9104876 (Version 2)
Quarter: 2013Q1

REPORT INFORMATION
  Report Type: Spontaneous
  Country: JP (occurrence: JP)
  Receive Date: 20130220
  Receipt Date: 20130320
  Transmission Date: 20140127
  Serious: Yes (Other)
  Sender: FDA-Public Use
  Company Number: JP-JNJFOC-20120308987

PATIENT
  Age: 27 None
  Sex: Female

DRUGS (4)
  1. ZYRTEC [Suspect]
     Route: 048
  2. ZYRTEC [Suspect]
     Indication: URTICARIA
     Dosage: 13 WEEKS 4 DAYS
     Route: 048
     Dates: start: 20120327, end: 20120629
  3. ALLEGRA [Suspect]
     Indication: URTICARIA
     Route: 048
     Dates: end: 20120306
  4. NASONEX [Concomitant]
     Indication: RHINITIS ALLERGIC
     Route: 045
     Dates: start: 20110824, end: 20120804

REACTIONS (2)
  - Abortion spontaneous [Unknown]
  - Exposure during pregnancy [Recovered/Resolved]
